FAERS Safety Report 24947622 (Version 1)
Quarter: 2025Q1

REPORT INFORMATION
  Report Type: Spontaneous
  Country: US (occurrence: US)
  Receive Date: 20250210
  Receipt Date: 20250210
  Transmission Date: 20250408
  Serious: No
  Sender: TEVA
  Company Number: US-TEVA-VS-3290337

PATIENT
  Age: 53 Year
  Sex: Female

DRUGS (1)
  1. AUSTEDO [Suspect]
     Active Substance: DEUTETRABENAZINE
     Indication: Tardive dyskinesia
     Dosage: (SHE IS TAKING ONE 9MG AND ONE 12MG TABLET TWICE A DAY)
     Route: 065

REACTIONS (1)
  - Drug ineffective [Unknown]
